FAERS Safety Report 15516350 (Version 1)
Quarter: 2018Q4

REPORT INFORMATION
  Report Type: Spontaneous
  Country: US (occurrence: US)
  Receive Date: 20181011
  Receipt Date: 20181011
  Transmission Date: 20190205
  Serious: Yes (Hospitalization)
  Sender: FDA-Public Use
  Company Number: None

PATIENT
  Age: 33 Year
  Sex: Male
  Weight: 82.1 kg

DRUGS (3)
  1. IFOSFAMIDE. [Suspect]
     Active Substance: IFOSFAMIDE
     Dates: end: 20180928
  2. TAXOL [Suspect]
     Active Substance: PACLITAXEL
     Dates: end: 20180924
  3. CISPLATIN. [Suspect]
     Active Substance: CISPLATIN
     Dates: end: 20180928

REACTIONS (4)
  - Febrile neutropenia [None]
  - Chest pain [None]
  - Arthralgia [None]
  - Pulmonary embolism [None]

NARRATIVE: CASE EVENT DATE: 20180928
